FAERS Safety Report 20858443 (Version 2)
Quarter: 2022Q2

REPORT INFORMATION
  Report Type: Spontaneous
  Country: CN (occurrence: None)
  Receive Date: 20220521
  Receipt Date: 20220622
  Transmission Date: 20220721
  Serious: Yes (Other)
  Sender: FDA-Public Use
  Company Number: CN-ROCHE-3097085

PATIENT
  Age: 55 Year
  Sex: Male
  Weight: 71 kg

DRUGS (7)
  1. OBINUTUZUMAB [Suspect]
     Active Substance: OBINUTUZUMAB
     Indication: Follicular lymphoma
     Dosage: D1,D8,D15
     Route: 042
     Dates: start: 20211112
  2. OBINUTUZUMAB [Suspect]
     Active Substance: OBINUTUZUMAB
     Dosage: D0
     Route: 041
     Dates: start: 20211210
  3. BENDAMUSTINE [Concomitant]
     Active Substance: BENDAMUSTINE
     Indication: Follicular lymphoma
     Dosage: D2,D3
     Route: 041
     Dates: start: 20211112
  4. CYCLOPHOSPHAMIDE [Concomitant]
     Active Substance: CYCLOPHOSPHAMIDE
     Indication: Follicular lymphoma
     Dosage: D1
     Dates: start: 20211210, end: 202205
  5. DOXORUBICIN HYDROCHLORIDE [Concomitant]
     Active Substance: DOXORUBICIN HYDROCHLORIDE
     Indication: Follicular lymphoma
     Dosage: D1
     Dates: start: 20211210, end: 202205
  6. VINDESINE [Concomitant]
     Active Substance: VINDESINE
     Indication: Follicular lymphoma
     Dosage: D1
     Dates: start: 20211210, end: 202205
  7. DEXAMETHASONE [Concomitant]
     Active Substance: DEXAMETHASONE
     Indication: Follicular lymphoma
     Dosage: D1-D5
     Dates: start: 20211210, end: 202205

REACTIONS (2)
  - Haematotoxicity [Unknown]
  - Granulocyte count decreased [Unknown]
